FAERS Safety Report 9911469 (Version 2)
Quarter: 2014Q1

REPORT INFORMATION
  Report Type: Report from Study
  Country: NZ (occurrence: NZ)
  Receive Date: 20140219
  Receipt Date: 20140325
  Transmission Date: 20141002
  Serious: Yes (Death, Hospitalization, Other)
  Sender: FDA-Public Use
  Company Number: PHHY2014NZ019924

PATIENT
  Age: 68 Year
  Sex: Female

DRUGS (3)
  1. CLOZARIL [Suspect]
     Indication: SCHIZOPHRENIA
     Dosage: 300 MG, NOCTE DAILY
     Route: 048
     Dates: start: 20120111
  2. CLOZARIL [Suspect]
     Indication: SCHIZOAFFECTIVE DISORDER
  3. SODIUM VALPROATE [Concomitant]
     Indication: SCHIZOPHRENIA
     Dosage: 500 MG, BID
     Route: 048

REACTIONS (10)
  - Colon cancer [Fatal]
  - Intestinal obstruction [Fatal]
  - Intestinal perforation [Fatal]
  - Neoplasm malignant [Fatal]
  - Carbohydrate antigen 19-9 increased [Unknown]
  - Colon dysplasia [Unknown]
  - Constipation [Unknown]
  - C-reactive protein increased [Unknown]
  - Neutrophil count increased [Unknown]
  - Haemoglobin decreased [Unknown]
